FAERS Safety Report 4473864-3 (Version None)
Quarter: 2004Q4

REPORT INFORMATION
  Report Type: 
  Country: None (occurrence: None)
  Receive Date: 20041014
  Receipt Date: 20041001
  Transmission Date: 20050328
  Serious: Yes (Death)
  Sender: FDA-Public Use
  Company Number: GB-JNJFOC-20040908931

PATIENT
  Sex: Male
  Weight: 82 kg

DRUGS (17)
  1. REOPRO [Suspect]
     Route: 042
  2. REOPRO [Suspect]
     Indication: ANGIOPLASTY
     Route: 042
  3. ASPIRIN [Concomitant]
     Indication: PROPHYLAXIS
     Route: 049
  4. CLOPIDOGREL [Concomitant]
     Route: 049
  5. NICORANDIL [Concomitant]
     Indication: ANGINA PECTORIS
     Route: 049
  6. RAMIPRIL [Concomitant]
     Indication: HYPERTENSION
     Route: 049
  7. SALBUTAMOL [Concomitant]
     Route: 055
  8. ATROVENT [Concomitant]
     Route: 055
  9. BECOTIDE [Concomitant]
     Route: 055
  10. OXIS [Concomitant]
     Route: 055
  11. FINASTERIDE [Concomitant]
     Route: 049
  12. ATROVASTATIN [Concomitant]
  13. ISOSORBIDE [Concomitant]
     Indication: ANGINA PECTORIS
     Route: 049
  14. LANSOPRAZOLE [Concomitant]
     Route: 049
  15. DILTIAZEM HCL [Concomitant]
     Indication: HYPERTENSION
     Route: 049
  16. FUROSEMIDE [Concomitant]
     Route: 049
  17. DOTHIEPIN HYDROCHLORIDE [Concomitant]
     Indication: DEPRESSION
     Route: 049

REACTIONS (3)
  - BLOOD CREATININE INCREASED [None]
  - DEATH [None]
  - HAEMOGLOBIN DECREASED [None]
